FAERS Safety Report 5934959-8 (Version None)
Quarter: 2008Q4

REPORT INFORMATION
  Report Type: 
  Country: None (occurrence: None)
  Receive Date: 20081028
  Receipt Date: 20081017
  Transmission Date: 20090506
  Serious: Yes (Hospitalization)
  Sender: FDA-Public Use
  Company Number: 2008002737

PATIENT
  Age: 59 Year
  Sex: Male

DRUGS (21)
  1. TARCEVA [Suspect]
     Indication: PANCREATIC CARCINOMA
     Dosage: 150 MG, QD, ORAL
     Route: 048
     Dates: end: 20080620
  2. GEMCITABINE [Suspect]
     Dosage: INTRAVENOUS
     Route: 042
  3. CISPLATIN [Suspect]
     Dosage: INTRAVENOUS
     Route: 042
  4. AMLODIPINE [Concomitant]
  5. ATENOLOL [Concomitant]
  6. VITAMIN B6 [Concomitant]
  7. CALCIUM WITH VITAMIN D (CALCIUM WITH VITAMIN D) [Concomitant]
  8. CLINDAMYCIN CREAM (CLINDAMYCIN) [Concomitant]
  9. HYDROCHLOROTHIAZIDE [Concomitant]
  10. REGULAR INSULIN SLIDING SCALE (INSULIN) [Concomitant]
  11. INSULIN GLARGINE (LANTUS) (INSULIN GLARGINE) [Concomitant]
  12. LISINOPRIL [Concomitant]
  13. OMEPRAZOLE [Concomitant]
  14. PANCRELIPASE (PANCRELIPASE) [Concomitant]
  15. POTASSIUM (KCL) (POTASSIUM CHLORIDE) [Concomitant]
  16. SIMVASTATIN [Concomitant]
  17. MODAFINIL [Concomitant]
  18. TESTOSTERONE TOPICAL GEL [Concomitant]
  19. MULTIVITAMIN [Concomitant]
  20. DARBEPOETIN ALFA (DARBEPOETIN ALFA) [Concomitant]
  21. PEGFILGRASTIM [Concomitant]

REACTIONS (20)
  - ASPIRATION [None]
  - BLOOD COUNT ABNORMAL [None]
  - BLOOD GLUCOSE INCREASED [None]
  - DEHYDRATION [None]
  - DIARRHOEA [None]
  - DIVERTICULUM [None]
  - DRUG INTOLERANCE [None]
  - DRUG TOXICITY [None]
  - GLOMERULAR FILTRATION RATE DECREASED [None]
  - HAEMATOCRIT DECREASED [None]
  - HYPOKALAEMIA [None]
  - HYPOMAGNESAEMIA [None]
  - METABOLIC ACIDOSIS [None]
  - METASTASES TO THYROID [None]
  - NO THERAPEUTIC RESPONSE [None]
  - PNEUMONIA [None]
  - PULMONARY GRANULOMA [None]
  - RENAL FAILURE ACUTE [None]
  - THYROID NEOPLASM [None]
  - VOMITING [None]
